FAERS Safety Report 19096477 (Version 1)
Quarter: 2021Q2

REPORT INFORMATION
  Report Type: Spontaneous
  Country: US (occurrence: US)
  Receive Date: 20210405
  Receipt Date: 20210405
  Transmission Date: 20210717
  Serious: Yes (Hospitalization)
  Sender: FDA-Public Use
  Company Number: None

PATIENT
  Age: 60 Year
  Sex: Female
  Weight: 103.5 kg

DRUGS (5)
  1. ACETAMINOPHEN 975 MG PO [Concomitant]
     Dates: start: 20210403, end: 20210403
  2. GAMUNEX?C [Suspect]
     Active Substance: HUMAN IMMUNOGLOBULIN G
     Indication: CHRONIC INFLAMMATORY DEMYELINATING POLYRADICULONEUROPATHY
     Dosage: ?          OTHER FREQUENCY:EVERY TWO WEEKS;?
     Route: 042
     Dates: start: 20210403, end: 20210403
  3. METHYLPREDNISOLONE 60 MG IV PUSH [Concomitant]
     Dates: start: 20210403, end: 20210403
  4. DIPHENHYDRAMINE 50 MG IV PUSH [Concomitant]
     Dates: start: 20210403, end: 20210403
  5. GAMUNEX?C [Suspect]
     Active Substance: HUMAN IMMUNOGLOBULIN G
     Indication: CHRONIC INFLAMMATORY DEMYELINATING POLYRADICULONEUROPATHY
     Dosage: ?          OTHER FREQUENCY:EVERY 2 WEEKS;?
     Route: 042
     Dates: start: 20210403, end: 20210403

REACTIONS (4)
  - Dyspnoea [None]
  - Blood pressure increased [None]
  - Chest pain [None]
  - Infusion related reaction [None]

NARRATIVE: CASE EVENT DATE: 20210403
